FAERS Safety Report 7440687-2 (Version None)
Quarter: 2011Q2

REPORT INFORMATION
  Report Type: 
  Country: None (occurrence: None)
  Receive Date: 20110427
  Receipt Date: 20110413
  Transmission Date: 20111010
  Serious: Yes (Death, Other)
  Sender: FDA-Public Use
  Company Number: VE-GENENTECH-317056

PATIENT
  Sex: Female

DRUGS (4)
  1. DICLOFENAC [Concomitant]
     Indication: PRODUCT USED FOR UNKNOWN INDICATION
  2. CONCOMITANT DRUG [Concomitant]
     Indication: PRODUCT USED FOR UNKNOWN INDICATION
  3. CELESTAMINE TAB [Concomitant]
     Indication: PRODUCT USED FOR UNKNOWN INDICATION
  4. XOLAIR [Suspect]
     Indication: PRODUCT USED FOR UNKNOWN INDICATION

REACTIONS (4)
  - METASTASES TO LUNG [None]
  - SKIN ODOUR ABNORMAL [None]
  - TRACHEAL CANCER [None]
  - COUGH [None]
